FAERS Safety Report 18857167 (Version 1)
Quarter: 2021Q1

REPORT INFORMATION
  Report Type: Report from Study
  Country: MX (occurrence: MX)
  Receive Date: 20210208
  Receipt Date: 20210208
  Transmission Date: 20210420
  Serious: Yes (Other)
  Sender: FDA-Public Use
  Company Number: MX-JNJFOC-20210210720

PATIENT
  Age: 64 Year
  Sex: Female
  Weight: 72 kg

DRUGS (1)
  1. SIMPONI [Suspect]
     Active Substance: GOLIMUMAB
     Indication: RHEUMATOID ARTHRITIS
     Dosage: LAST MEDICATION APPLICATION ON 08?JAN?2021.
     Route: 058
     Dates: start: 20200624

REACTIONS (2)
  - Arthralgia [Not Recovered/Not Resolved]
  - Tuberculosis [Unknown]

NARRATIVE: CASE EVENT DATE: 202102
